FAERS Safety Report 5351992-8 (Version None)
Quarter: 2007Q2

REPORT INFORMATION
  Report Type: 
  Country: None (occurrence: None)
  Receive Date: 20070611
  Receipt Date: 20070531
  Transmission Date: 20071010
  Serious: Yes (Hospitalization, Other)
  Sender: FDA-Public Use
  Company Number: PHEH2007US07969

PATIENT
  Age: 19 Year
  Sex: Female
  Weight: 61.5 kg

DRUGS (4)
  1. MIRALAX [Concomitant]
     Indication: CONSTIPATION
     Dosage: 17 G, PRN
     Route: 048
  2. EXJADE [Suspect]
     Indication: HAEMOSIDEROSIS
     Dosage: 1500 MG, QD
     Route: 048
     Dates: start: 20060909, end: 20070313
  3. ACIDOPHILUS [Concomitant]
     Dosage: 1 TAB, QD
     Route: 048
  4. VITAMIN CAP [Concomitant]
     Dosage: 1 TAB, QD
     Route: 048

REACTIONS (38)
  - ABDOMINAL PAIN [None]
  - ALANINE AMINOTRANSFERASE INCREASED [None]
  - ALPHA HAEMOLYTIC STREPTOCOCCAL INFECTION [None]
  - ANOREXIA [None]
  - ASPARTATE AMINOTRANSFERASE INCREASED [None]
  - BACTERIAL INFECTION [None]
  - BLOOD ALBUMIN DECREASED [None]
  - BLOOD ALKALINE PHOSPHATASE INCREASED [None]
  - BLOOD BICARBONATE DECREASED [None]
  - BLOOD BILIRUBIN INCREASED [None]
  - BLOOD CHLORIDE INCREASED [None]
  - BLOOD CREATININE INCREASED [None]
  - BLOOD GLUCOSE INCREASED [None]
  - BLOOD IRON INCREASED [None]
  - BLOOD PHOSPHORUS DECREASED [None]
  - BLOOD URIC ACID DECREASED [None]
  - BLOOD URINE PRESENT [None]
  - CARBON DIOXIDE DECREASED [None]
  - CHOLECYSTECTOMY [None]
  - CULTURE URINE POSITIVE [None]
  - ESCHERICHIA URINARY TRACT INFECTION [None]
  - GLUCOSE URINE PRESENT [None]
  - HYPOPHOSPHATAEMIA [None]
  - IMMUNOLOGY TEST ABNORMAL [None]
  - IRON BINDING CAPACITY TOTAL DECREASED [None]
  - METABOLIC ACIDOSIS [None]
  - NAUSEA [None]
  - ORAL INTAKE REDUCED [None]
  - PH BODY FLUID ABNORMAL [None]
  - PROTEIN TOTAL DECREASED [None]
  - PROTEIN URINE PRESENT [None]
  - RENAL FAILURE ACUTE [None]
  - SERUM FERRITIN INCREASED [None]
  - TRANSFERRIN SATURATION INCREASED [None]
  - URINARY INCONTINENCE [None]
  - URINE ANALYSIS ABNORMAL [None]
  - URINE KETONE BODY PRESENT [None]
  - VOMITING [None]
